FAERS Safety Report 7971364-7 (Version None)
Quarter: 2011Q4

REPORT INFORMATION
  Report Type: 
  Country: None (occurrence: None)
  Receive Date: 20111212
  Receipt Date: 20111201
  Transmission Date: 20120403
  Serious: Yes (Other)
  Sender: FDA-Public Use
  Company Number: FR-PFIZER INC-2011025630

PATIENT
  Age: 62 Year
  Sex: Male

DRUGS (3)
  1. ATARAX [Suspect]
     Indication: ANXIETY
     Dosage: 50 MG, UNK
     Route: 048
  2. KEPPRA [Suspect]
     Dosage: UNK
     Route: 048
  3. LAMICTAL [Concomitant]
     Dosage: UNK
     Route: 048

REACTIONS (3)
  - FATIGUE [None]
  - SUICIDAL IDEATION [None]
  - SOMNOLENCE [None]
